FAERS Safety Report 25740234 (Version 1)
Quarter: 2025Q3

REPORT INFORMATION
  Report Type: Spontaneous
  Country: US (occurrence: None)
  Receive Date: 20250828
  Receipt Date: 20250828
  Transmission Date: 20251021
  Serious: Yes (Hospitalization)
  Sender: FDA-CTU
  Company Number: None

PATIENT
  Sex: Male

DRUGS (15)
  1. BCG LIVE [Suspect]
     Active Substance: BCG LIVE
  2. BCG LIVE [Suspect]
     Active Substance: BCG LIVE
  3. BCG LIVE [Suspect]
     Active Substance: BCG LIVE
  4. PEMBROLIZUMAB [Suspect]
     Active Substance: PEMBROLIZUMAB
  5. EZETIMIBE [Concomitant]
     Active Substance: EZETIMIBE
  6. ROSUVATATIN [Concomitant]
  7. CALCIUM [Concomitant]
     Active Substance: CALCIUM
  8. CAFFEINE [Concomitant]
     Active Substance: CAFFEINE
  9. TARTRATE [Concomitant]
  10. ERGOTAMINE [Concomitant]
     Active Substance: CAFFEINE\ERGOTAMINE\ERGOTAMINE TARTRATE
  11. PROPYPHENAZONE [Concomitant]
     Active Substance: PROPYPHENAZONE
  12. MAGNESIUM OXIDE [Concomitant]
     Active Substance: MAGNESIUM OXIDE
  13. BROTIZOLAM [Concomitant]
     Active Substance: BROTIZOLAM
  14. VIBEGRON [Concomitant]
     Active Substance: VIBEGRON
  15. TEPRENONE [Concomitant]
     Active Substance: TEPRENONE

REACTIONS (10)
  - Dysuria [None]
  - Bladder irritation [None]
  - Cholelithiasis [None]
  - Inflammation [None]
  - Urinary occult blood positive [None]
  - White blood cells urine positive [None]
  - Enterocolitis [None]
  - Eosinophil count increased [None]
  - Urinary bladder haemorrhage [None]
  - Therapy change [None]

NARRATIVE: CASE EVENT DATE: 20221108
